FAERS Safety Report 10228336 (Version 1)
Quarter: 2014Q2

REPORT INFORMATION
  Report Type: Spontaneous
  Country: US (occurrence: None)
  Receive Date: 20140609
  Receipt Date: 20140609
  Transmission Date: 20141212
  Serious: Yes (Disabling)
  Sender: FDA-Public Use
  Company Number: None

PATIENT
  Age: 43 Year
  Sex: Female
  Weight: 106.6 kg

DRUGS (1)
  1. CELEBREX [Suspect]
     Indication: OSTEOARTHRITIS
     Route: 048
     Dates: start: 20130701, end: 20140528

REACTIONS (7)
  - Fibromyalgia [None]
  - Wheezing [None]
  - Hypersomnia [None]
  - Weight increased [None]
  - Dependence [None]
  - Drug prescribing error [None]
  - Dyspnoea [None]
